FAERS Safety Report 16355346 (Version 9)
Quarter: 2020Q2

REPORT INFORMATION
  Report Type: Spontaneous
  Country: JP (occurrence: JP)
  Receive Date: 20190525
  Receipt Date: 20200414
  Transmission Date: 20200713
  Serious: Yes (Death, Hospitalization, Other)
  Sender: FDA-Public Use
  Company Number: JP-009507513-1905JPN002081J

PATIENT
  Age: 66 Year
  Sex: Female
  Weight: 55 kg

DRUGS (7)
  1. URSO [Concomitant]
     Active Substance: URSODIOL
     Indication: LIVER DISORDER
     Dosage: 2 DOSAGE FORM, TID
     Route: 048
     Dates: start: 20190421, end: 20190527
  2. TOLVAPTAN [Concomitant]
     Active Substance: TOLVAPTAN
     Indication: CONGESTIVE HEPATOPATHY
     Dosage: 1 DOSAGE FORM, QD
     Route: 048
     Dates: start: 20190421, end: 20190527
  3. KEYTRUDA [Suspect]
     Active Substance: PEMBROLIZUMAB
     Indication: NON-SMALL CELL LUNG CANCER
     Dosage: 55 MILLIGRAM/KILOGRAM, EVERY 4 WEEKS
     Route: 041
     Dates: start: 20190502, end: 20190502
  4. AMITIZA [Concomitant]
     Active Substance: LUBIPROSTONE
     Indication: CONSTIPATION
     Dosage: 1 DOSAGE FORM, QD
     Route: 048
     Dates: start: 20190426, end: 20190527
  5. PEMETREXED DISODIUM [Suspect]
     Active Substance: PEMETREXED DISODIUM
     Indication: NON-SMALL CELL LUNG CANCER
     Dosage: UNK UNK, EVERY 4 WEEKS
     Route: 041
     Dates: start: 20190502, end: 20190502
  6. CARBOPLATIN. [Suspect]
     Active Substance: CARBOPLATIN
     Indication: NON-SMALL CELL LUNG CANCER
     Dosage: UNK UNK, EVERY 4 WEEKS
     Route: 041
     Dates: start: 20190502, end: 20190502
  7. KALIMATE [Concomitant]
     Active Substance: CALCIUM POLYSTYRENE SULFONATE
     Indication: HYPERKALAEMIA
     Dosage: 1 DOSAGE FORM, QD
     Route: 048
     Dates: start: 20190426, end: 20190527

REACTIONS (8)
  - Hepatic failure [Fatal]
  - Decreased appetite [Not Recovered/Not Resolved]
  - Immune-mediated adverse reaction [Fatal]
  - Pyrexia [Not Recovered/Not Resolved]
  - Bone marrow failure [Recovered/Resolved]
  - Renal failure [Fatal]
  - C-reactive protein increased [Not Recovered/Not Resolved]
  - Off label use [Unknown]

NARRATIVE: CASE EVENT DATE: 20190509
